FAERS Safety Report 17751064 (Version 5)
Quarter: 2020Q2

REPORT INFORMATION
  Report Type: Report from Study
  Country: None (occurrence: CH)
  Receive Date: 20200506
  Receipt Date: 20200528
  Transmission Date: 20200714
  Serious: Yes (Hospitalization, Other)
  Sender: FDA-Public Use
  Company Number: CH-ABBVIE-20K-151-3381367-00

PATIENT
  Age: 76 Year
  Sex: Male

DRUGS (4)
  1. DUODOPA [Suspect]
     Active Substance: CARBIDOPA\LEVODOPA
     Dosage: MORNING DOSE: 8ML CONTINUOUS RATE DAY 3ML/H NIGHT 3 ML/H EXTRA DOSE:1ML 24 H THERAPY
     Route: 050
     Dates: start: 20200505
  2. DUODOPA [Suspect]
     Active Substance: CARBIDOPA\LEVODOPA
     Indication: PARKINSON^S DISEASE
     Route: 050
     Dates: start: 20170515, end: 20200203
  3. DUODOPA [Suspect]
     Active Substance: CARBIDOPA\LEVODOPA
     Dosage: MD: 4 ML, CRD: 3 ML/H, ED: 1 ML?16 H THERAPY
     Route: 050
     Dates: start: 20200203, end: 20200406
  4. DUODOPA [Suspect]
     Active Substance: CARBIDOPA\LEVODOPA
     Dosage: MD: 4 ML, CRD: 3 ML/H, CRN: 3 ML/H, ED: 1 ML?24 H THERAPY
     Route: 050
     Dates: start: 20200406, end: 20200505

REACTIONS (6)
  - Mouth haemorrhage [Unknown]
  - Wrong technique in device usage process [Unknown]
  - Pneumonia aspiration [Not Recovered/Not Resolved]
  - Device occlusion [Unknown]
  - Mouth haemorrhage [Recovered/Resolved]
  - Gastric ulcer haemorrhage [Unknown]

NARRATIVE: CASE EVENT DATE: 20200501
